FAERS Safety Report 5642819-5 (Version None)
Quarter: 2008Q1

REPORT INFORMATION
  Report Type: 
  Country: None (occurrence: None)
  Receive Date: 20080228
  Receipt Date: 20080225
  Transmission Date: 20080703
  Serious: Yes (Death, Hospitalization)
  Sender: FDA-Public Use
  Company Number: US-BRISTOL-MYERS SQUIBB COMPANY-14089650

PATIENT
  Age: 80 Year
  Sex: Male

DRUGS (6)
  1. COUMADIN [Suspect]
     Indication: CARDIAC FAILURE CONGESTIVE
  2. COUMADIN [Suspect]
     Indication: CARDIAC PACEMAKER INSERTION
  3. COUMADIN [Suspect]
     Indication: CARDIOMEGALY
  4. COUMADIN [Suspect]
     Indication: ATRIAL FIBRILLATION
  5. LASIX [Concomitant]
  6. ATENOLOL [Concomitant]

REACTIONS (3)
  - ASPIRATION [None]
  - DEATH [None]
  - DYSPNOEA [None]
